FAERS Safety Report 9247193 (Version 1)
Quarter: 2013Q2

REPORT INFORMATION
  Report Type: Spontaneous
  Country: US (occurrence: US)
  Receive Date: 20130423
  Receipt Date: 20130423
  Transmission Date: 20140414
  Serious: No
  Sender: FDA-Public Use
  Company Number: US-BIOGENIDEC-2013BI035581

PATIENT
  Age: 36 Year
  Sex: Female

DRUGS (1)
  1. TYSABRI [Suspect]
     Indication: MULTIPLE SCLEROSIS
     Route: 042
     Dates: start: 20120322

REACTIONS (8)
  - Blindness unilateral [Not Recovered/Not Resolved]
  - Spinal pain [Recovered/Resolved]
  - Spondylitis [Not Recovered/Not Resolved]
  - Migraine [Not Recovered/Not Resolved]
  - Memory impairment [Not Recovered/Not Resolved]
  - Erythema [Not Recovered/Not Resolved]
  - Multiple sclerosis relapse [Recovered/Resolved]
  - Hypertension [Not Recovered/Not Resolved]
